FAERS Safety Report 8507825 (Version 4)
Quarter: 2014Q1

REPORT INFORMATION
  Report Type: Spontaneous
  Country: US (occurrence: US)
  Receive Date: 20120412
  Receipt Date: 20140307
  Transmission Date: 20141002
  Serious: Yes (Hospitalization)
  Sender: FDA-Public Use
  Company Number: US-ASTRAZENECA-2011SE21932

PATIENT
  Age: 49 Year
  Sex: Female
  Weight: 43.1 kg

DRUGS (8)
  1. NEXIUM [Suspect]
     Indication: GASTROOESOPHAGEAL REFLUX DISEASE
     Route: 048
  2. NEXIUM [Suspect]
     Indication: GASTROOESOPHAGEAL REFLUX DISEASE
     Route: 048
     Dates: start: 2010, end: 201308
  3. PAROXETINE HCL [Suspect]
     Indication: ANXIETY
     Route: 048
  4. PAROXETINE HCL [Suspect]
     Indication: ANXIETY
     Route: 048
  5. PAROXETINE HCL [Suspect]
     Indication: ANXIETY
     Route: 048
     Dates: start: 1997
  6. ALPRAZOLAM [Suspect]
     Route: 048
  7. GABAPENTIN [Concomitant]
     Indication: DEPRESSION
     Route: 048
     Dates: start: 2013
  8. GAS-X [Concomitant]
     Indication: GASTROOESOPHAGEAL REFLUX DISEASE

REACTIONS (15)
  - Cystitis [Recovered/Resolved with Sequelae]
  - Gastrooesophageal reflux disease [Unknown]
  - Vitamin D deficiency [Unknown]
  - Ligament sprain [Unknown]
  - Muscle strain [Unknown]
  - Anxiety disorder [Unknown]
  - Dyspepsia [Unknown]
  - Depression [Unknown]
  - Flatulence [Unknown]
  - Feeling abnormal [Unknown]
  - Discomfort [Unknown]
  - Gastrooesophageal reflux disease [Unknown]
  - Dyspepsia [Unknown]
  - Drug dose omission [Unknown]
  - Off label use [Unknown]
